FAERS Safety Report 25146000 (Version 2)
Quarter: 2025Q2

REPORT INFORMATION
  Report Type: Report from Study
  Country: US (occurrence: US)
  Receive Date: 20250401
  Receipt Date: 20250512
  Transmission Date: 20250716
  Serious: Yes (Other)
  Sender: BAYER HEALTHCARE PHARMACEUTICALS INC.
  Company Number: US-BAYER-2025A040092

PATIENT
  Age: 57 Year
  Sex: Male

DRUGS (12)
  1. STIVARGA [Suspect]
     Active Substance: REGORAFENIB MONOHYDRATE
     Indication: Rectal cancer
     Dosage: 160 MG, QD FOR 21 DAYS EVERY 28 DAYS
     Route: 048
     Dates: start: 20241213
  2. CALTRATE [Concomitant]
     Active Substance: CALCIUM CARBONATE
  3. ELIQUIS [Concomitant]
     Active Substance: APIXABAN
  4. KLOR-CON [Concomitant]
     Active Substance: POTASSIUM CHLORIDE
  5. Lido/Prilocaine [Concomitant]
  6. MAGNESIUM [Concomitant]
     Active Substance: MAGNESIUM
  7. NORTRIPTYLINE [Concomitant]
     Active Substance: NORTRIPTYLINE
  8. ONDANSETRON [Concomitant]
     Active Substance: ONDANSETRON
  9. OXYCODONE [Concomitant]
     Active Substance: OXYCODONE
  10. PANTOPRAZOLE [Concomitant]
     Active Substance: PANTOPRAZOLE
  11. PREGABALIN [Concomitant]
     Active Substance: PREGABALIN
  12. PROCHLORPERAZINE [Concomitant]
     Active Substance: PROCHLORPERAZINE

REACTIONS (6)
  - Neuropathy peripheral [Not Recovered/Not Resolved]
  - Blood pressure increased [Not Recovered/Not Resolved]
  - Peripheral swelling [Unknown]
  - Testicular swelling [Unknown]
  - Pain in extremity [Unknown]
  - Testicular pain [Unknown]

NARRATIVE: CASE EVENT DATE: 20250408
